FAERS Safety Report 17924832 (Version 1)
Quarter: 2020Q2

REPORT INFORMATION
  Report Type: Spontaneous
  Country: FR (occurrence: FR)
  Receive Date: 20200622
  Receipt Date: 20200622
  Transmission Date: 20200714
  Serious: Yes (Hospitalization, Other)
  Sender: FDA-Public Use
  Company Number: FR-VIIV HEALTHCARE LIMITED-FR2020104932

PATIENT
  Age: 11 Day
  Sex: Male
  Weight: 2.76 kg

DRUGS (2)
  1. RETROVIR [Suspect]
     Active Substance: ZIDOVUDINE
     Indication: HUMAN IMMUNODEFICIENCY VIRUS TRANSMISSION
     Dosage: UNK
     Route: 042
     Dates: start: 20200520, end: 20200522
  2. RETROVIR [Suspect]
     Active Substance: ZIDOVUDINE
     Indication: HUMAN IMMUNODEFICIENCY VIRUS TRANSMISSION
     Dosage: UNK
     Route: 048
     Dates: start: 20200522, end: 20200531

REACTIONS (1)
  - Enterocolitis [Recovering/Resolving]

NARRATIVE: CASE EVENT DATE: 20200531
